FAERS Safety Report 5245463-7 (Version None)
Quarter: 2007Q1

REPORT INFORMATION
  Report Type: 
  Country: None (occurrence: None)
  Receive Date: 20070223
  Receipt Date: 20070215
  Transmission Date: 20070707
  Serious: Yes (Life-Threatening, Hospitalization)
  Sender: FDA-Public Use
  Company Number: ES-ELI_LILLY_AND_COMPANY-ES200702001440

PATIENT
  Age: 42 Year
  Sex: Male

DRUGS (2)
  1. XIGRIS [Suspect]
     Indication: SEPSIS
     Dates: start: 20070127, end: 20070128
  2. CLEXANE [Concomitant]
     Dosage: 40 MG, DAILY (1/D)

REACTIONS (2)
  - ABDOMINAL COMPARTMENT SYNDROME [None]
  - HAEMORRHAGE [None]
